FAERS Safety Report 19929627 (Version 2)
Quarter: 2021Q4

REPORT INFORMATION
  Report Type: Spontaneous
  Country: US (occurrence: US)
  Receive Date: 20211007
  Receipt Date: 20211007
  Transmission Date: 20220303
  Serious: No
  Sender: FDA-Public Use
  Company Number: US-PFIZER INC-202101064199

PATIENT
  Age: 52 Year
  Sex: Female
  Weight: 108.86 kg

DRUGS (2)
  1. BICILLIN L-A [Suspect]
     Active Substance: PENICILLIN G BENZATHINE
     Indication: Lyme disease
     Dosage: 1 DF, 2X/WEEK (TAKES THE FULL DOSE BY INJECTION TWICE A WEEK)
     Dates: start: 20210525
  2. LIDOCAINE HYDROCHLORIDE [Suspect]
     Active Substance: LIDOCAINE HYDROCHLORIDE
     Indication: Local anaesthesia
     Dosage: 0.75 ML

REACTIONS (4)
  - Injection site extravasation [Unknown]
  - Injection site mass [Unknown]
  - Intentional product use issue [Unknown]
  - Off label use [Unknown]
